FAERS Safety Report 25508401 (Version 2)
Quarter: 2025Q3

REPORT INFORMATION
  Report Type: Report from Study
  Country: GB (occurrence: GB)
  Receive Date: 20250703
  Receipt Date: 20250811
  Transmission Date: 20251021
  Serious: Yes (Hospitalization, Other)
  Sender: ROCHE
  Company Number: GB-ROCHE-2073982

PATIENT
  Sex: Female

DRUGS (8)
  1. TOCILIZUMAB [Suspect]
     Active Substance: TOCILIZUMAB
     Indication: Rheumatoid arthritis
     Route: 058
     Dates: start: 20171108
  2. TOCILIZUMAB [Suspect]
     Active Substance: TOCILIZUMAB
     Route: 058
     Dates: start: 2017
  3. TOCILIZUMAB [Suspect]
     Active Substance: TOCILIZUMAB
     Route: 058
     Dates: start: 2019
  4. TOCILIZUMAB [Suspect]
     Active Substance: TOCILIZUMAB
     Route: 058
     Dates: start: 20200101
  5. TOCILIZUMAB [Suspect]
     Active Substance: TOCILIZUMAB
     Route: 058
  6. MORPHINE [Concomitant]
     Active Substance: MORPHINE
  7. FOLIC ACID [Concomitant]
     Active Substance: FOLIC ACID
  8. METHOTREXATE [Concomitant]
     Active Substance: METHOTREXATE

REACTIONS (13)
  - White blood cell count decreased [Unknown]
  - Infection [Unknown]
  - Full blood count abnormal [Unknown]
  - Herpes zoster [Unknown]
  - Malaise [Unknown]
  - Pain in extremity [Unknown]
  - Swelling [Unknown]
  - Rheumatoid arthritis [Unknown]
  - Infected bite [Unknown]
  - Lower limb fracture [Unknown]
  - Infection [Unknown]
  - Lower respiratory tract infection [Unknown]
  - Tooth infection [Unknown]
